FAERS Safety Report 18610035 (Version 1)
Quarter: 2020Q4

REPORT INFORMATION
  Report Type: Spontaneous
  Country: TR (occurrence: TR)
  Receive Date: 20201214
  Receipt Date: 20201214
  Transmission Date: 20210114
  Serious: Yes (Other)
  Sender: FDA-Public Use
  Company Number: TR-ACCORD-210893

PATIENT
  Age: 19 Year
  Sex: Male

DRUGS (1)
  1. OXYBUTYNIN/OXYBUTYNIN HYDROCHLORIDE [Suspect]
     Active Substance: OXYBUTYNIN
     Indication: PRODUCT USED FOR UNKNOWN INDICATION

REACTIONS (8)
  - Insomnia [Recovered/Resolved]
  - Drug dependence [Unknown]
  - Withdrawal syndrome [Unknown]
  - Agitation [Unknown]
  - Intentional product misuse [Unknown]
  - Stress [Unknown]
  - Restlessness [Recovered/Resolved]
  - Drug abuse [Unknown]
